FAERS Safety Report 8455907-5 (Version None)
Quarter: 2012Q2

REPORT INFORMATION
  Report Type: 
  Country: None (occurrence: None)
  Receive Date: 20120621
  Receipt Date: 20120615
  Transmission Date: 20120825
  Serious: Yes (Hospitalization)
  Sender: FDA-Public Use
  Company Number: GB-ROCHE-1061411

PATIENT
  Sex: Male
  Weight: 102 kg

DRUGS (3)
  1. STEROIDS NOS [Concomitant]
  2. MABTHERA [Suspect]
     Indication: PRODUCT USED FOR UNKNOWN INDICATION
     Dates: start: 20110915
  3. METHOTRATE [Concomitant]

REACTIONS (1)
  - CEREBRAL INFARCTION [None]
